FAERS Safety Report 25059462 (Version 1)
Quarter: 2025Q1

REPORT INFORMATION
  Report Type: Spontaneous
  Country: US (occurrence: US)
  Receive Date: 20250310
  Receipt Date: 20250310
  Transmission Date: 20250408
  Serious: No
  Sender: AMGEN
  Company Number: US-AMGEN-USASP2025044650

PATIENT
  Age: 39 Year
  Sex: Female

DRUGS (12)
  1. OTEZLA [Suspect]
     Active Substance: APREMILAST
     Indication: Psoriasis
     Dosage: 30 MILLIGRAM, BID
     Route: 048
     Dates: start: 20250108
  2. BACLOFEN [Concomitant]
     Active Substance: BACLOFEN
  3. CARBAMAZEPINE [Concomitant]
     Active Substance: CARBAMAZEPINE
  4. DIAZEPAM [Concomitant]
     Active Substance: DIAZEPAM
  5. Docusate sod [Concomitant]
  6. HYDROXYZINE HYDROCHLORIDE [Concomitant]
     Active Substance: HYDROXYZINE HYDROCHLORIDE
  7. IBUPROFEN [Concomitant]
     Active Substance: IBUPROFEN
  8. KETOCONAZOLE [Concomitant]
     Active Substance: KETOCONAZOLE
  9. LACOSAMIDE [Concomitant]
     Active Substance: LACOSAMIDE
  10. MONTELUKAST [Concomitant]
     Active Substance: MONTELUKAST
  11. SELENIUM SULFIDE [Concomitant]
     Active Substance: SELENIUM SULFIDE
  12. TEMAZEPAM [Concomitant]
     Active Substance: TEMAZEPAM

REACTIONS (1)
  - Psoriasis [Not Recovered/Not Resolved]

NARRATIVE: CASE EVENT DATE: 20250212
